FAERS Safety Report 5180932-X (Version None)
Quarter: 2006Q4

REPORT INFORMATION
  Report Type: 
  Country: None (occurrence: None)
  Receive Date: 20061218
  Receipt Date: 20061218
  Transmission Date: 20070319
  Serious: Yes (Hospitalization)
  Sender: FDA-Public Use
  Company Number: None

PATIENT
  Sex: Female
  Weight: 19.9 kg

DRUGS (1)
  1. DIPRIVAN [Suspect]
     Indication: GENERAL ANAESTHESIA
     Dosage: 60MG  BOLUS   IV BOLUS
     Route: 040
     Dates: start: 20061101, end: 20061101

REACTIONS (2)
  - BODY TEMPERATURE INCREASED [None]
  - POST PROCEDURAL COMPLICATION [None]
